FAERS Safety Report 13458637 (Version 2)
Quarter: 2017Q2

REPORT INFORMATION
  Report Type: Report from Study
  Country: US (occurrence: US)
  Receive Date: 20170419
  Receipt Date: 20170609
  Transmission Date: 20170830
  Serious: Yes (Death)
  Sender: FDA-Public Use
  Company Number: US-BAYER-2017-055534

PATIENT
  Age: 86 Year
  Sex: Female

DRUGS (2)
  1. ADEMPAS [Suspect]
     Active Substance: RIOCIGUAT
     Indication: PULMONARY ARTERIAL HYPERTENSION
     Dosage: 0.5 MG, TID
     Route: 048
     Dates: start: 20170316, end: 20170406
  2. OXYGEN. [Concomitant]
     Active Substance: OXYGEN
     Dosage: 5 L, FOR 7-8 HOURS

REACTIONS (5)
  - Chest pain [None]
  - Oxygen saturation decreased [None]
  - Acute respiratory failure [Fatal]
  - Dyspnoea [None]
  - Cardiac failure congestive [Fatal]

NARRATIVE: CASE EVENT DATE: 20170316
